FAERS Safety Report 9228059 (Version 2)
Quarter: 2013Q4

REPORT INFORMATION
  Report Type: Spontaneous
  Country: GB (occurrence: GB)
  Receive Date: 20130412
  Receipt Date: 20131009
  Transmission Date: 20140711
  Serious: Yes (Other)
  Sender: FDA-Public Use
  Company Number: GB-PFIZER INC-2013111040

PATIENT
  Age: 77 Year
  Sex: Male
  Weight: 101.6 kg

DRUGS (6)
  1. RAMIPRIL [Suspect]
     Dosage: 5 MG, 1X/DAY
     Route: 048
  2. RAMIPRIL [Suspect]
     Dosage: 10 MG, 1X/DAY
     Route: 048
  3. RAMIPRIL [Suspect]
     Dosage: 5 MG, 1X/DAY
     Route: 048
  4. VIAZEM XL [Suspect]
     Dosage: UNK
     Route: 065
  5. SYMBICORT [Concomitant]
     Indication: BRONCHIECTASIS
     Dosage: UNK
     Route: 065
  6. VENTOLIN [Concomitant]
     Indication: BRONCHIECTASIS
     Dosage: UNK
     Route: 065

REACTIONS (7)
  - Dizziness [Recovering/Resolving]
  - Muscle spasms [Recovered/Resolved]
  - Pallor [Unknown]
  - Pulse abnormal [Unknown]
  - Loss of consciousness [Unknown]
  - Fall [Unknown]
  - Quality of life decreased [Unknown]
